FAERS Safety Report 12838183 (Version 1)
Quarter: 2016Q4

REPORT INFORMATION
  Report Type: Spontaneous
  Country: IT (occurrence: IT)
  Receive Date: 20161012
  Receipt Date: 20161012
  Transmission Date: 20170207
  Serious: Yes (Other)
  Sender: FDA-Public Use
  Company Number: PHHY2016IT139129

PATIENT
  Sex: Male

DRUGS (1)
  1. COSENTYX [Suspect]
     Active Substance: SECUKINUMAB
     Indication: PSORIASIS
     Dosage: UNK
     Route: 058
     Dates: start: 201604

REACTIONS (5)
  - Electrocardiogram T wave inversion [Unknown]
  - Blood creatine phosphokinase increased [Unknown]
  - Bradycardia [Unknown]
  - Malaise [Unknown]
  - Abnormal precordial movement [Unknown]

NARRATIVE: CASE EVENT DATE: 20161004
